FAERS Safety Report 21690296 (Version 2)
Quarter: 2023Q1

REPORT INFORMATION
  Report Type: Spontaneous
  Country: US (occurrence: US)
  Receive Date: 20221206
  Receipt Date: 20230103
  Transmission Date: 20230418
  Serious: Yes (Hospitalization, Other)
  Sender: FDA-Public Use
  Company Number: US-UNITED THERAPEUTICS-UNT-2022-026239

PATIENT
  Sex: Female

DRUGS (4)
  1. REMODULIN [Suspect]
     Active Substance: TREPROSTINIL
     Indication: Pulmonary hypertension
     Dosage: UNK, CONTINUING
     Route: 058
     Dates: start: 202210
  2. REMODULIN [Suspect]
     Active Substance: TREPROSTINIL
     Dosage: 0.11062 ?G/KG, CONTINUING
     Route: 058
     Dates: start: 202210, end: 2022
  3. REMODULIN [Suspect]
     Active Substance: TREPROSTINIL
     Dosage: 0.11065 ?G/KG, CONTINUING
     Route: 058
     Dates: start: 2022, end: 2022
  4. REMODULIN [Suspect]
     Active Substance: TREPROSTINIL
     Dosage: 0.09912 ?G/KG (AT A RATE OF 43 ?/HR)), CONTINUING
     Route: 058
     Dates: start: 2022

REACTIONS (12)
  - Weight increased [Unknown]
  - Dyspnoea [Unknown]
  - Chest pain [Unknown]
  - Fluid retention [Unknown]
  - Ascites [Not Recovered/Not Resolved]
  - Flushing [Unknown]
  - Headache [Unknown]
  - Pain [Unknown]
  - Feeling abnormal [Unknown]
  - Condition aggravated [Unknown]
  - Constipation [Unknown]
  - Product administration interrupted [Recovered/Resolved]

NARRATIVE: CASE EVENT DATE: 20220101
